FAERS Safety Report 24015867 (Version 1)
Quarter: 2024Q2

REPORT INFORMATION
  Report Type: Spontaneous
  Country: US (occurrence: US)
  Receive Date: 20240626
  Receipt Date: 20240626
  Transmission Date: 20240715
  Serious: Yes (Hospitalization)
  Sender: FDA-Public Use
  Company Number: US-002147023-NVSC2024US129279

PATIENT

DRUGS (4)
  1. IMATINIB [Suspect]
     Active Substance: IMATINIB
     Indication: Product used for unknown indication
     Dosage: 100 MG
     Route: 065
  2. DASATINIB [Suspect]
     Active Substance: DASATINIB
     Indication: Product used for unknown indication
     Dosage: 100 MG
     Route: 065
     Dates: start: 201802
  3. DASATINIB [Suspect]
     Active Substance: DASATINIB
     Dosage: 70 MG (FOUR MONTHS LATER)
     Route: 065
  4. DASATINIB [Suspect]
     Active Substance: DASATINIB
     Dosage: 50 MG (ANOTHER FOUR MONTHS LATER)
     Route: 065
     Dates: end: 202209

REACTIONS (5)
  - Influenza [Unknown]
  - Negative thoughts [Unknown]
  - Depression [Unknown]
  - Fatigue [Unknown]
  - Malaise [Unknown]
